FAERS Safety Report 5697907-4 (Version None)
Quarter: 2008Q2

REPORT INFORMATION
  Report Type: 
  Country: None (occurrence: None)
  Receive Date: 20080404
  Receipt Date: 20080404
  Transmission Date: 20081010
  Serious: Yes (Hospitalization)
  Sender: FDA-Public Use
  Company Number: None

PATIENT
  Age: 72 Year
  Sex: Male
  Weight: 83.1 kg

DRUGS (1)
  1. ERTAPENEM [Suspect]
     Indication: INFECTION
     Dosage: 1GM EVERY DAY IV
     Route: 042
     Dates: start: 20071120, end: 20071124

REACTIONS (7)
  - DERMATITIS [None]
  - HEMIPARESIS [None]
  - MUSCLE TWITCHING [None]
  - OXYGEN SATURATION DECREASED [None]
  - RASH ERYTHEMATOUS [None]
  - RASH PRURITIC [None]
  - URTICARIA [None]
